FAERS Safety Report 16855344 (Version 3)
Quarter: 2019Q4

REPORT INFORMATION
  Report Type: Spontaneous
  Country: US (occurrence: US)
  Receive Date: 20190926
  Receipt Date: 20191024
  Transmission Date: 20200122
  Serious: Yes (Death, Hospitalization, Other)
  Sender: FDA-Public Use
  Company Number: US-HORIZON-PRO-0207-2019

PATIENT
  Age: 21 Year
  Sex: Female

DRUGS (1)
  1. PROCYSBI [Suspect]
     Active Substance: CYSTEAMINE BITARTRATE
     Indication: CYSTINOSIS
     Dosage: 900 MG BY MOUTH EVERY 12 HOURS
     Route: 048

REACTIONS (11)
  - General physical health deterioration [Unknown]
  - Diabetes mellitus [Unknown]
  - Respiratory failure [Fatal]
  - Nausea [Unknown]
  - Tachycardia [Unknown]
  - Chest pain [Unknown]
  - Vomiting [Unknown]
  - Cardiac arrest [Fatal]
  - Dehydration [Unknown]
  - Hepatic failure [Fatal]
  - Cardiac failure [Fatal]

NARRATIVE: CASE EVENT DATE: 20190918
